FAERS Safety Report 18396931 (Version 1)
Quarter: 2020Q4

REPORT INFORMATION
  Report Type: Spontaneous
  Country: US (occurrence: US)
  Receive Date: 20201018
  Receipt Date: 20201018
  Transmission Date: 20210114
  Serious: Yes (Other)
  Sender: FDA-Public Use
  Company Number: None

PATIENT
  Age: 47 Year
  Weight: 62 kg

DRUGS (13)
  1. ASAPIRIN 81 MG DAILY [Concomitant]
     Dates: start: 20201015
  2. PIP/TAZO 3.375 GM Q6H [Concomitant]
     Dates: start: 20201014, end: 20201017
  3. LINEZOLID 600 MG IV Q12H [Concomitant]
     Dates: start: 20201015, end: 20201017
  4. METRONIDAZOLE 500 MG IV Q8H [Concomitant]
     Dates: start: 20201015, end: 20201017
  5. VANCOMYCIN 1 GM X ONE DOSE [Concomitant]
     Dates: start: 20201014
  6. BUDESONIDE 1 MG NEBULIZER AT BEDTIME [Concomitant]
     Dates: start: 20201014
  7. KCL 40 MEQ X 4 DOSES [Concomitant]
     Dates: start: 20201017, end: 20201017
  8. REMDESIVIR. [Suspect]
     Active Substance: REMDESIVIR
     Indication: COVID-19
     Route: 042
     Dates: end: 20201018
  9. ACETAMINOPHEN 650 MG Q4H PRN [Concomitant]
     Dates: start: 20201014
  10. ALBUTEROL 90 MCG MDI Q4H PRN [Concomitant]
     Dates: start: 20201014
  11. ONDANSETRON 4 MG IVP Q4H PRN N/V [Concomitant]
     Dates: start: 20201017
  12. TRAZODONE 50 MG AT BEDTIME [Concomitant]
     Dates: start: 20201015
  13. ENOXAPARIN 60 MG TWICE DAILY [Concomitant]
     Dates: start: 20201015

REACTIONS (2)
  - Hepatic enzyme increased [None]
  - Aspartate aminotransferase increased [None]

NARRATIVE: CASE EVENT DATE: 20201018
